FAERS Safety Report 24351957 (Version 1)
Quarter: 2024Q3

REPORT INFORMATION
  Report Type: Spontaneous
  Country: US (occurrence: US)
  Receive Date: 20240923
  Receipt Date: 20240923
  Transmission Date: 20241017
  Serious: No
  Sender: REVANCE THERAPEUTICS
  Company Number: US-REVANCE THERAPEUTICS INC.-US-REV-2024-000442

PATIENT

DRUGS (2)
  1. DAXIBOTULINUMTOXIN A-LANM [Suspect]
     Active Substance: DAXIBOTULINUMTOXIN A-LANM
     Indication: Skin wrinkling
     Dosage: UNK UNITS AT GLABELLA (UNK UNITS), FRONTALIS (16 UNITS) AND CROWS (UNK UNITS)
     Route: 065
     Dates: start: 20240719
  2. DAXIBOTULINUMTOXIN A-LANM [Suspect]
     Active Substance: DAXIBOTULINUMTOXIN A-LANM
     Dosage: 16 U TOTAL: FOREHEAD (16 UNITS)
     Route: 065
     Dates: start: 20240802

REACTIONS (2)
  - Drug ineffective for unapproved indication [Unknown]
  - Off label use [Unknown]

NARRATIVE: CASE EVENT DATE: 20240719
